FAERS Safety Report 8882002 (Version 1)
Quarter: 2012Q4

REPORT INFORMATION
  Report Type: 
  Country: US (occurrence: US)
  Receive Date: 20121105
  Receipt Date: 20121105
  Transmission Date: 20130627
  Serious: Yes (Other)
  Sender: FDA-Public Use
  Company Number: US-BAYER-2012-114338

PATIENT
  Sex: Female

DRUGS (2)
  1. MAGNEVIST [Suspect]
     Indication: SCAN
     Dosage: 19 ml, ONCE
     Dates: start: 201210, end: 201210
  2. MAGNEVIST [Suspect]
     Indication: SCAN
     Dosage: 19 ml, ONCE
     Route: 042
     Dates: start: 20121023, end: 20121023

REACTIONS (1)
  - Thrombosis [None]
